FAERS Safety Report 4768157-0 (Version None)
Quarter: 2005Q3

REPORT INFORMATION
  Report Type: 
  Country: None (occurrence: None)
  Receive Date: 20050908
  Receipt Date: 20050718
  Transmission Date: 20060218
  Serious: Yes (Disabling)
  Sender: FDA-Public Use
  Company Number: A03200502176

PATIENT
  Age: 49 Year
  Sex: Female
  Weight: 64.5 kg

DRUGS (8)
  1. ELOXATIN [Suspect]
     Indication: COLORECTAL CANCER
     Dosage: 146 MG OTHER - INTRAVENOUS NOS
     Route: 042
     Dates: start: 20050516, end: 20050516
  2. FLUOROURACIL [Concomitant]
  3. LEUCOVORIN [Concomitant]
  4. PALONOSETRON [Concomitant]
  5. DEXAMETHASONE [Concomitant]
  6. MAGNESIUM [Concomitant]
  7. CALCIUM GLUCONATE [Concomitant]
  8. ATORVASTATIN [Concomitant]

REACTIONS (4)
  - HYPOAESTHESIA [None]
  - NEUROPATHY [None]
  - SENSORY LOSS [None]
  - TEMPERATURE INTOLERANCE [None]
